FAERS Safety Report 9012354 (Version 2)
Quarter: 2013Q1

REPORT INFORMATION
  Report Type: Spontaneous
  Country: FR (occurrence: None)
  Receive Date: 20121231
  Receipt Date: 20130131
  Transmission Date: 20140127
  Serious: Yes (Death)
  Sender: FDA-Public Use
  Company Number: 219939

PATIENT
  Age: 82 Year
  Sex: Female
  Weight: 90 kg

DRUGS (7)
  1. INNOHEP (TINZAPARIN SODIUM) [Suspect]
     Indication: THROMBOSIS
     Dates: start: 20121111, end: 20121129
  2. PREVISCAN [Suspect]
     Indication: THROMBOSIS
     Dosage: FROM 0.5 TO 1.75 DAILY, ORAL
     Route: 048
     Dates: start: 20121111, end: 20121120
  3. AMAREL [Concomitant]
  4. REMINYL [Concomitant]
  5. PARIET [Concomitant]
  6. CACUT D3 (LEKOVIT CA) [Concomitant]
  7. TRANSIPEG (MACROGOL) [Concomitant]

REACTIONS (19)
  - Thrombosis [None]
  - Vomiting [None]
  - Abdominal distension [None]
  - Hypotension [None]
  - Hyperhidrosis [None]
  - Tachypnoea [None]
  - Shock haemorrhagic [None]
  - Anaemia [None]
  - Renal failure acute [None]
  - Cardiac arrest [None]
  - Acute pulmonary oedema [None]
  - Cardio-respiratory arrest [None]
  - Infrequent bowel movements [None]
  - Intestinal obstruction [None]
  - Hypovolaemia [None]
  - Renal haemorrhage [None]
  - Bronchospasm [None]
  - Sedation [None]
  - Muscle haemorrhage [None]
